FAERS Safety Report 6001000-0 (Version None)
Quarter: 2008Q4

REPORT INFORMATION
  Report Type: 
  Country: None (occurrence: None)
  Receive Date: 20081215
  Receipt Date: 20080407
  Transmission Date: 20090506
  Serious: No
  Sender: FDA-Public Use
  Company Number: US-BRISTOL-MYERS SQUIBB COMPANY-14141071

PATIENT
  Sex: Female

DRUGS (2)
  1. CHOLESTYRAMINE [Suspect]
  2. ARAVA [Suspect]

REACTIONS (2)
  - DIARRHOEA [None]
  - DYSPEPSIA [None]
